FAERS Safety Report 14007069 (Version 1)
Quarter: 2017Q3

REPORT INFORMATION
  Report Type: Spontaneous
  Country: GB (occurrence: GB)
  Receive Date: 20170925
  Receipt Date: 20170925
  Transmission Date: 20171128
  Serious: Yes (Other)
  Sender: FDA-Public Use
  Company Number: GB-ACCORD-058924

PATIENT
  Age: 60 Year
  Sex: Female
  Weight: 64 kg

DRUGS (9)
  1. CODEINE [Concomitant]
     Active Substance: CODEINE
  2. ATORVASTATIN [Concomitant]
     Active Substance: ATORVASTATIN
  3. FLUOXETINE [Concomitant]
     Active Substance: FLUOXETINE HYDROCHLORIDE
  4. SOLIFENACIN/SOLIFENACIN SUCCINATE [Concomitant]
  5. LEVETIRACETAM. [Suspect]
     Active Substance: LEVETIRACETAM
     Indication: FOCAL DYSCOGNITIVE SEIZURES
     Dosage: AT UNKNOWN DOSE FROM 01-JAN-2015 TO AUG-2017
     Route: 048
     Dates: start: 201708
  6. PARACETAMOL [Concomitant]
     Active Substance: ACETAMINOPHEN
  7. WARFARIN [Concomitant]
     Active Substance: WARFARIN
  8. LEVETIRACETAM. [Suspect]
     Active Substance: LEVETIRACETAM
     Indication: FOCAL DYSCOGNITIVE SEIZURES
     Route: 048
     Dates: start: 20150101, end: 201708
  9. FULTIUM-D3 [Concomitant]
     Active Substance: CHOLECALCIFEROL

REACTIONS (1)
  - Loss of consciousness [Not Recovered/Not Resolved]

NARRATIVE: CASE EVENT DATE: 20170819
